FAERS Safety Report 14463586 (Version 1)
Quarter: 2018Q1

REPORT INFORMATION
  Report Type: Spontaneous
  Country: US (occurrence: US)
  Receive Date: 20180130
  Receipt Date: 20180130
  Transmission Date: 20180509
  Serious: No
  Sender: FDA-Public Use
  Company Number: US-ACORDA-ACO_133143_2017

PATIENT

DRUGS (1)
  1. AMPYRA [Suspect]
     Active Substance: DALFAMPRIDINE
     Indication: GAIT DISTURBANCE
     Dosage: 10 MG, BID
     Route: 048

REACTIONS (5)
  - Memory impairment [Unknown]
  - Drug ineffective [Unknown]
  - Headache [Recovered/Resolved]
  - Anger [Recovered/Resolved]
  - Laziness [Unknown]

NARRATIVE: CASE EVENT DATE: 20170123
